FAERS Safety Report 11542004 (Version 4)
Quarter: 2016Q2

REPORT INFORMATION
  Report Type: Report from Study
  Country: US (occurrence: US)
  Receive Date: 20150923
  Receipt Date: 20160509
  Transmission Date: 20160815
  Serious: Yes (Disabling, Other)
  Sender: FDA-Public Use
  Company Number: US-MALLINCKRODT-T201504350

PATIENT
  Age: 57 Year
  Sex: Female

DRUGS (4)
  1. REPOSITORY CORTICOTROPIN INJECTION [Suspect]
     Active Substance: CORTICOTROPIN
     Indication: RHEUMATOID ARTHRITIS
     Dosage: 80 UNITS TWICE WKLY
     Route: 058
     Dates: start: 20150318, end: 201507
  2. REPOSITORY CORTICOTROPIN INJECTION [Suspect]
     Active Substance: CORTICOTROPIN
     Dosage: 80 UNITS EVERY 72 HOURS
     Route: 030
     Dates: start: 201603
  3. REPOSITORY CORTICOTROPIN INJECTION [Suspect]
     Active Substance: CORTICOTROPIN
     Dosage: 80 UNITS TWICE WKLY
     Route: 058
     Dates: start: 2015, end: 201512
  4. REPOSITORY CORTICOTROPIN INJECTION [Suspect]
     Active Substance: CORTICOTROPIN
     Dosage: 80 UNITS ONCE DAILY FOR 5 DAYS
     Route: 030
     Dates: start: 201603, end: 201603

REACTIONS (12)
  - Incorrect dosage administered [Recovered/Resolved]
  - Asthma [Not Recovered/Not Resolved]
  - Lung neoplasm [Not Recovered/Not Resolved]
  - Mobility decreased [Recovering/Resolving]
  - Therapy cessation [Recovered/Resolved]
  - Hypoacusis [Not Recovered/Not Resolved]
  - Musculoskeletal stiffness [Not Recovered/Not Resolved]
  - Joint dislocation [Not Recovered/Not Resolved]
  - Pyrexia [Unknown]
  - Condition aggravated [Unknown]
  - Pain [Recovering/Resolving]
  - Bedridden [Recovered/Resolved]

NARRATIVE: CASE EVENT DATE: 201507
